FAERS Safety Report 9517126 (Version 1)
Quarter: 2013Q3

REPORT INFORMATION
  Report Type: Spontaneous
  Country: US (occurrence: US)
  Receive Date: 20130911
  Receipt Date: 20130911
  Transmission Date: 20140515
  Serious: No
  Sender: FDA-Public Use
  Company Number: US-PFIZER INC-2013257596

PATIENT
  Age: 24 Month
  Sex: Male
  Weight: 10.89 kg

DRUGS (1)
  1. CHILDREN^S MOTRIN [Suspect]
     Indication: TOOTHACHE
     Dosage: 22.5 ML, UNK
     Route: 048
     Dates: start: 20130711, end: 20130712

REACTIONS (2)
  - Cough [Unknown]
  - Throat irritation [Unknown]
